FAERS Safety Report 4335325-1 (Version None)
Quarter: 2004Q2

REPORT INFORMATION
  Report Type: 
  Country: None (occurrence: None)
  Receive Date: 20040407
  Receipt Date: 20040407
  Transmission Date: 20050107
  Serious: No
  Sender: FDA-Public Use
  Company Number: None

PATIENT
  Age: 53 Year
  Sex: Male
  Weight: 85.2762 kg

DRUGS (2)
  1. CRESTOR [Suspect]
     Dosage: 20 MG ONE QD
  2. TRICOR [Concomitant]

REACTIONS (2)
  - ARTHRALGIA [None]
  - PAIN [None]
